FAERS Safety Report 9755827 (Version 1)
Quarter: 2013Q4

REPORT INFORMATION
  Report Type: Spontaneous
  Country: US (occurrence: US)
  Receive Date: 20131213
  Receipt Date: 20131213
  Transmission Date: 20140711
  Serious: No
  Sender: FDA-Public Use
  Company Number: US-GLAXOSMITHKLINE-A1025000A

PATIENT
  Age: 42 Year
  Sex: Male

DRUGS (2)
  1. TARGET NTS CLEAR [Suspect]
     Indication: EX-TOBACCO USER
     Dates: start: 20130527, end: 20130528
  2. NICORETTE NICOTINE POLACRILEX CHERRY LOZENGE, 4MG [Suspect]
     Indication: PRODUCT USED FOR UNKNOWN INDICATION

REACTIONS (5)
  - Nausea [Recovered/Resolved]
  - Palpitations [Recovered/Resolved]
  - Nicotine dependence [Unknown]
  - Drug administration error [Unknown]
  - Intentional drug misuse [Unknown]
